FAERS Safety Report 7649842-X (Version None)
Quarter: 2011Q3

REPORT INFORMATION
  Report Type: 
  Country: None (occurrence: None)
  Receive Date: 20110802
  Receipt Date: 20110720
  Transmission Date: 20111222
  Serious: Yes (Death, Hospitalization)
  Sender: FDA-Public Use
  Company Number: RU-CELGENEUS-251-50794-11070553

PATIENT
  Sex: Male
  Weight: 76.5 kg

DRUGS (4)
  1. VIDAZA [Suspect]
     Dosage: 140 MILLIGRAM
     Route: 050
     Dates: start: 20110616, end: 20110622
  2. ANTIHYPERTENSIVES [Concomitant]
     Dosage: 2.5 MILLIGRAM
     Route: 065
     Dates: start: 20110523
  3. VIDAZA [Suspect]
     Dosage: 140 MILLIGRAM
     Route: 050
     Dates: start: 20110714, end: 20110716
  4. ANTIHYPERTENSIVES [Concomitant]
     Dosage: 10 MILLIGRAM
     Route: 065
     Dates: start: 20110523, end: 20110608

REACTIONS (4)
  - ACUTE MYELOID LEUKAEMIA [None]
  - DYSPNOEA [None]
  - OEDEMA [None]
  - ASTHENIA [None]
